FAERS Safety Report 22303085 (Version 1)
Quarter: 2023Q2

REPORT INFORMATION
  Report Type: Spontaneous
  Country: PT (occurrence: PT)
  Receive Date: 20230510
  Receipt Date: 20230510
  Transmission Date: 20230722
  Serious: Yes (Other)
  Sender: FDA-Public Use
  Company Number: PT-ROCHE-3339750

PATIENT
  Age: 47 Year
  Sex: Female

DRUGS (9)
  1. TRASTUZUMAB [Suspect]
     Active Substance: TRASTUZUMAB
     Indication: HER2 positive breast cancer
     Dosage: 420 MG ONCE EVERY 2 WEEKS
     Route: 042
     Dates: start: 202108
  2. PACLITAXEL [Concomitant]
     Active Substance: PACLITAXEL
     Dosage: WEEKLY, FOR NEXT 12 WEEKS
  3. ZOLEDRONIC ACID [Concomitant]
     Active Substance: ZOLEDRONIC ACID
     Dosage: 4 MG ONCE A YEAR
     Route: 042
  4. GOSERELIN [Concomitant]
     Active Substance: GOSERELIN
     Dosage: 3.6 MG ONCE A MONTH
     Route: 058
  5. TAMOXIFEN [Concomitant]
     Active Substance: TAMOXIFEN
     Dosage: 20 MG ONCE DAILY
     Route: 048
  6. DOXORUBICIN [Concomitant]
     Active Substance: DOXORUBICIN
     Dosage: FOR 4 WEEKS
  7. CYCLOPHOSPHAMIDE [Concomitant]
     Active Substance: CYCLOPHOSPHAMIDE
     Dosage: FOR 4 WEEKS
  8. PREDNISOLONE [Concomitant]
     Active Substance: PREDNISOLONE
     Dosage: 5 MG
  9. PERTUZUMAB [Concomitant]
     Active Substance: PERTUZUMAB
     Indication: HER2 positive breast cancer
     Dosage: UNK
     Dates: start: 202108

REACTIONS (1)
  - Autoimmune hypothyroidism [Unknown]

NARRATIVE: CASE EVENT DATE: 20220101
